FAERS Safety Report 8064349-6 (Version None)
Quarter: 2012Q1

REPORT INFORMATION
  Report Type: 
  Country: None (occurrence: None)
  Receive Date: 20120123
  Receipt Date: 20120117
  Transmission Date: 20120608
  Serious: Yes (Other)
  Sender: FDA-Public Use
  Company Number: US-PFIZER INC-2012014287

PATIENT
  Sex: Female

DRUGS (3)
  1. PRISTIQ [Suspect]
     Dosage: UNK
     Dates: start: 20110101, end: 20111221
  2. WELLBUTRIN [Suspect]
     Dosage: UNK
  3. TAMOXIFEN CITRATE [Suspect]
     Dosage: UNK
     Dates: start: 20110701

REACTIONS (2)
  - WEIGHT INCREASED [None]
  - NEOPLASM MALIGNANT [None]
